FAERS Safety Report 9045904 (Version 1)
Quarter: 2013Q1

REPORT INFORMATION
  Report Type: Report from Study
  Country: US (occurrence: US)
  Receive Date: 20130201
  Receipt Date: 20130201
  Transmission Date: 20140127
  Serious: Yes (Other)
  Sender: FDA-Public Use
  Company Number: US-ABBOTT-12P-163-1022876-00

PATIENT
  Age: 67 Year
  Sex: Female

DRUGS (9)
  1. HUMIRA [Suspect]
     Indication: RHEUMATOID ARTHRITIS
     Dates: start: 2004, end: 201006
  2. HUMIRA [Suspect]
     Dates: start: 20120904
  3. GLYBURIDE [Concomitant]
     Indication: TYPE 2 DIABETES MELLITUS
     Dosage: 4 MG DAILY
  4. SYNTHROID [Concomitant]
     Indication: HYPOTHYROIDISM
     Dosage: 200 MCG DAILY
  5. COZAAR [Concomitant]
     Indication: HYPERTENSION
     Dosage: 50 MG DAILY
  6. LEFLUNOMIDE [Concomitant]
     Indication: RHEUMATOID ARTHRITIS
     Dosage: 20 MG DAILY
  7. GENERIC PAXIL [Concomitant]
     Indication: DEPRESSION
     Dosage: 20 MG DAILY
  8. VITAMIN D [Concomitant]
     Indication: PRODUCT USED FOR UNKNOWN INDICATION
     Dosage: 1.2 MG DAILY
  9. VITAMIN B6 OTC [Concomitant]
     Indication: VITAMIN SUPPLEMENTATION
     Dosage: DAILY

REACTIONS (5)
  - Joint injury [Unknown]
  - Bronchitis [Recovering/Resolving]
  - Injection site pain [Unknown]
  - Rheumatoid arthritis [Unknown]
  - Malaise [Unknown]
